FAERS Safety Report 8992007 (Version 1)
Quarter: 2012Q4

REPORT INFORMATION
  Report Type: 
  Country: IL (occurrence: IL)
  Receive Date: 20121231
  Receipt Date: 20121231
  Transmission Date: 20130627
  Serious: Yes (Other)
  Sender: FDA-Public Use
  Company Number: CHPA2012IL025835

PATIENT
  Sex: Female

DRUGS (1)
  1. BENEFIBER [Suspect]
     Indication: NUTRITIONAL SUPPORT
     Dosage: 1 tbsp,  BID
     Route: 048
     Dates: start: 201212, end: 201212

REACTIONS (1)
  - Constipation [Recovered/Resolved]
